FAERS Safety Report 14465320 (Version 1)
Quarter: 2018Q1

REPORT INFORMATION
  Report Type: Other
  Country: US (occurrence: US)
  Receive Date: 20180131
  Receipt Date: 20180131
  Transmission Date: 20180509
  Serious: No
  Sender: FDA-Public Use
  Company Number: US-ACORDA-ACO_136583_2017

PATIENT

DRUGS (2)
  1. AMPYRA [Suspect]
     Active Substance: DALFAMPRIDINE
     Indication: ASTHENIA
     Dosage: 10 MG, Q 12 HRS
     Route: 065
  2. AMPYRA [Suspect]
     Active Substance: DALFAMPRIDINE
     Indication: GAIT DISTURBANCE

REACTIONS (3)
  - Product use in unapproved indication [Unknown]
  - Tremor [Recovered/Resolved]
  - Anxiety [Recovered/Resolved]
